FAERS Safety Report 6346424-7 (Version None)
Quarter: 2009Q3

REPORT INFORMATION
  Report Type: 
  Country: None (occurrence: None)
  Receive Date: 20090821
  Receipt Date: 20090706
  Transmission Date: 20100115
  Serious: No
  Sender: FDA-Public Use
  Company Number: 8048593

PATIENT
  Age: 32 Year
  Sex: Female

DRUGS (5)
  1. CIMZIA [Suspect]
     Indication: CROHN'S DISEASE
     Dosage: 400 MG /M SC
     Route: 058
     Dates: start: 20090421
  2. ENTEROCORT [Concomitant]
  3. XANAX [Concomitant]
  4. NEXIUM [Concomitant]
  5. ORTHO TRI-CYCLEN [Concomitant]

REACTIONS (2)
  - CONTUSION [None]
  - PAIN [None]
